FAERS Safety Report 6345043-6 (Version None)
Quarter: 2009Q3

REPORT INFORMATION
  Report Type: 
  Country: None (occurrence: None)
  Receive Date: 20090909
  Receipt Date: 20090831
  Transmission Date: 20100115
  Serious: Yes (Hospitalization)
  Sender: FDA-Public Use
  Company Number: US-BIOGENIDEC-2008BI024765

PATIENT
  Age: 54 Year
  Sex: Female
  Weight: 63 kg

DRUGS (1)
  1. AVONEX [Suspect]
     Indication: MULTIPLE SCLEROSIS
     Route: 030
     Dates: start: 20031110

REACTIONS (5)
  - ESCHERICHIA INFECTION [None]
  - PAIN [None]
  - SEPSIS [None]
  - TOXIC ENCEPHALOPATHY [None]
  - UROSEPSIS [None]
